FAERS Safety Report 14965472 (Version 1)
Quarter: 2018Q2

REPORT INFORMATION
  Report Type: Spontaneous
  Country: US (occurrence: US)
  Receive Date: 20180601
  Receipt Date: 20180601
  Transmission Date: 20180711
  Serious: Yes (Other)
  Sender: FDA-Public Use
  Company Number: US-ANIPHARMA-2018-US-009212

PATIENT
  Age: 63 Year
  Sex: Female

DRUGS (12)
  1. ANASTROZOLE. [Suspect]
     Active Substance: ANASTROZOLE
  2. LYNPARZA [Concomitant]
     Active Substance: OLAPARIB
  3. ZYRTEC [Concomitant]
     Active Substance: CETIRIZINE HYDROCHLORIDE
     Dosage: 10MG BY MOUTH NIGHTLY AS NEEDED
     Route: 048
  4. ZOFRAN [Concomitant]
     Active Substance: ONDANSETRON HYDROCHLORIDE
     Dosage: 8MG BY MOUTH EVERY 8 HOURS AS NEEDED
     Route: 048
  5. COMPAZINE [Concomitant]
     Active Substance: PROCHLORPERAZINE MALEATE
     Dosage: 10MG BY MOUTH EVERY 6 HOURS AS NEEDED
  6. CALCIUM [Concomitant]
     Active Substance: CALCIUM
     Dosage: 60MG BY MOUTH TWICE DAILY
     Route: 048
  7. TAMOXIFEN [Suspect]
     Active Substance: TAMOXIFEN
  8. ROXICODONE [Concomitant]
     Active Substance: OXYCODONE HYDROCHLORIDE
     Dosage: 5MG BY MOUTH 4 TIMES DAILY AS NEEDED
     Route: 048
  9. EFFEXOR XR [Concomitant]
     Active Substance: VENLAFAXINE HYDROCHLORIDE
     Dosage: 75MG BY MOUTH ONCE A DAY
  10. XGEVA [Concomitant]
     Active Substance: DENOSUMAB
     Dosage: 120MG
     Route: 058
     Dates: end: 20180424
  11. FASLODEX [Suspect]
     Active Substance: FULVESTRANT
  12. ATIVAN [Concomitant]
     Active Substance: LORAZEPAM
     Dosage: 0.5-1 TAB BY MOUTH NIGHTLY AS NEEDED
     Route: 048

REACTIONS (5)
  - Musculoskeletal disorder [Unknown]
  - Arthritis [Not Recovered/Not Resolved]
  - Metastases to bone [Unknown]
  - Bone pain [Not Recovered/Not Resolved]
  - Osteoporosis [Not Recovered/Not Resolved]
